FAERS Safety Report 8192885-0 (Version None)
Quarter: 2012Q1

REPORT INFORMATION
  Report Type: 
  Country: None (occurrence: None)
  Receive Date: 20120308
  Receipt Date: 20120227
  Transmission Date: 20120608
  Serious: Yes (Other)
  Sender: FDA-Public Use
  Company Number: US-JNJFOC-20120213480

PATIENT
  Sex: Male
  Weight: 97.52 kg

DRUGS (10)
  1. DILTIAZEM HCL [Concomitant]
     Indication: HYPERTENSION
     Route: 048
  2. XARELTO [Suspect]
     Indication: ATRIAL FIBRILLATION
     Route: 048
     Dates: start: 20120223
  3. XARELTO [Suspect]
     Route: 048
     Dates: start: 20120201, end: 20120220
  4. FINASTERIDE [Concomitant]
     Route: 065
     Dates: start: 20020101
  5. ACEBUTOLOL [Concomitant]
     Indication: HYPERTENSION
     Route: 048
  6. OMEPRAZOLE [Concomitant]
     Indication: GASTRIC DISORDER
     Route: 048
  7. ASPIRIN [Concomitant]
     Route: 048
  8. PROBENECID [Concomitant]
     Indication: GOUT
     Route: 048
  9. CANDESARTAN CILEXETIL [Concomitant]
     Indication: HYPERTENSION
     Route: 048
  10. ATORVASTATIN [Concomitant]
     Indication: BLOOD CHOLESTEROL
     Route: 048

REACTIONS (4)
  - INAPPROPRIATE SCHEDULE OF DRUG ADMINISTRATION [None]
  - HAEMORRHAGE [None]
  - CHROMATURIA [None]
  - PROSTATIC DISORDER [None]
